FAERS Safety Report 16468821 (Version 2)
Quarter: 2019Q2

REPORT INFORMATION
  Report Type: Spontaneous
  Country: TH (occurrence: TH)
  Receive Date: 20190624
  Receipt Date: 20190629
  Transmission Date: 20190711
  Serious: Yes (Death, Other)
  Sender: FDA-Public Use
  Company Number: TH-009507513-1906THA007742

PATIENT
  Age: 84 Year
  Sex: Male

DRUGS (1)
  1. KEYTRUDA [Suspect]
     Active Substance: PEMBROLIZUMAB
     Indication: LUNG NEOPLASM MALIGNANT
     Dosage: 100 MILLIGRAM, (STRENGTH: 100MG/VIAL)
     Route: 042
     Dates: start: 20190406, end: 20190406

REACTIONS (5)
  - Haemoptysis [Fatal]
  - Fatigue [Fatal]
  - Gait disturbance [Unknown]
  - Cough [Fatal]
  - Death [Fatal]

NARRATIVE: CASE EVENT DATE: 201904
